FAERS Safety Report 8401572 (Version 2)
Quarter: 2013Q1

REPORT INFORMATION
  Report Type: Spontaneous
  Country: US (occurrence: US)
  Receive Date: 20120210
  Receipt Date: 20130329
  Transmission Date: 20140127
  Serious: Yes (Death, Hospitalization)
  Sender: FDA-Public Use
  Company Number: US-RB-036205-12

PATIENT
  Age: 24 Month
  Sex: Female

DRUGS (3)
  1. SUBUTEX [Suspect]
     Indication: ACCIDENTAL EXPOSURE TO PRODUCT
     Dosage: UNKNOWN DOSE
     Route: 048
  2. ACETAMINOPHEN\HYDROCODONE [Suspect]
     Indication: ACCIDENTAL EXPOSURE TO PRODUCT
     Dosage: UNKNOWN DOSE
     Route: 048
  3. CLONAZEPAM [Suspect]
     Indication: ACCIDENTAL EXPOSURE TO PRODUCT
     Dosage: UNKNOWN DOSE
     Route: 048

REACTIONS (7)
  - Toxicity to various agents [Recovered/Resolved]
  - Apnoea [Recovered/Resolved]
  - Unresponsive to stimuli [Not Recovered/Not Resolved]
  - Pupil fixed [Not Recovered/Not Resolved]
  - Pneumonia [Fatal]
  - Haemorrhage [Fatal]
  - Accidental exposure to product [Recovered/Resolved]
